FAERS Safety Report 4888451-2 (Version None)
Quarter: 2006Q1

REPORT INFORMATION
  Report Type: 
  Country: None (occurrence: None)
  Receive Date: 20060119
  Receipt Date: 20060119
  Transmission Date: 20060701
  Serious: Yes (Hospitalization)
  Sender: FDA-Public Use
  Company Number: None

PATIENT
  Age: 71 Year
  Sex: Male
  Weight: 94.8018 kg

DRUGS (1)
  1. HEPARIN [Suspect]
     Dosage: UNK

REACTIONS (1)
  - HEPARIN-INDUCED THROMBOCYTOPENIA [None]
